FAERS Safety Report 9935529 (Version 1)
Quarter: 2014Q1

REPORT INFORMATION
  Report Type: Spontaneous
  Country: US (occurrence: US)
  Receive Date: 20140228
  Receipt Date: 20140228
  Transmission Date: 20141002
  Serious: No
  Sender: FDA-Public Use
  Company Number: US-PFIZER INC-2014057286

PATIENT
  Age: 52 Year
  Sex: Female

DRUGS (6)
  1. CELEBREX [Suspect]
     Dosage: UNK
  2. DOXYCYCLINE HYCLATE [Suspect]
     Dosage: UNK
  3. LOSARTAN [Suspect]
     Dosage: UNK
  4. LISINOPRIL [Suspect]
     Dosage: UNK
  5. MACROBID [Suspect]
     Dosage: UNK
  6. DURICEF [Suspect]
     Dosage: UNK

REACTIONS (1)
  - Drug hypersensitivity [Unknown]
